FAERS Safety Report 26138122 (Version 1)
Quarter: 2025Q4

REPORT INFORMATION
  Report Type: Spontaneous
  Country: US (occurrence: US)
  Receive Date: 20251210
  Receipt Date: 20251210
  Transmission Date: 20260118
  Serious: Yes (Other)
  Sender: BAXTER
  Company Number: US-BAXTER-2025BAX025496

PATIENT
  Age: 33 Year
  Sex: Male

DRUGS (1)
  1. DAPTOMYCIN [Suspect]
     Active Substance: DAPTOMYCIN
     Indication: Staphylococcal infection
     Dosage: UNK
     Route: 065

REACTIONS (6)
  - Rhabdomyolysis [Unknown]
  - Asthenia [Unknown]
  - Fatigue [Unknown]
  - Blood creatinine increased [Recovered/Resolved]
  - Condition aggravated [Recovered/Resolved]
  - Blood creatine phosphokinase increased [Recovering/Resolving]
